FAERS Safety Report 6446755-6 (Version None)
Quarter: 2009Q4

REPORT INFORMATION
  Report Type: 
  Country: None (occurrence: None)
  Receive Date: 20091119
  Receipt Date: 20090923
  Transmission Date: 20100525
  Serious: Yes (Other)
  Sender: FDA-Public Use
  Company Number: PHEH2009US13755

PATIENT
  Sex: Male

DRUGS (2)
  1. GLEEVEC [Suspect]
     Indication: CHRONIC MYELOID LEUKAEMIA
     Dosage: 400 MG, QD
     Route: 048
     Dates: start: 20080501, end: 20090501
  2. LIPITOR [Concomitant]
     Dosage: 20 MG, UNK

REACTIONS (6)
  - COAGULATION TIME SHORTENED [None]
  - EOSINOPHIL COUNT INCREASED [None]
  - FIBRIN D DIMER INCREASED [None]
  - PROTHROMBIN LEVEL INCREASED [None]
  - RASH [None]
  - WHITE BLOOD CELL COUNT INCREASED [None]
